FAERS Safety Report 8301427-8 (Version None)
Quarter: 2012Q2

REPORT INFORMATION
  Report Type: 
  Country: None (occurrence: None)
  Receive Date: 20120420
  Receipt Date: 20120409
  Transmission Date: 20120825
  Serious: No
  Sender: FDA-Public Use
  Company Number: JP-JNJFOC-20120405566

PATIENT

DRUGS (2)
  1. FENTANYL-100 [Suspect]
     Dosage: ADVISED TO CUT THE 12.5 UG/HR PATCH INTO HALF
     Route: 062
  2. FENTANYL-100 [Suspect]
     Indication: PRODUCT USED FOR UNKNOWN INDICATION
     Route: 062

REACTIONS (2)
  - DRUG PRESCRIBING ERROR [None]
  - WRONG TECHNIQUE IN DRUG USAGE PROCESS [None]
